FAERS Safety Report 25217644 (Version 1)
Quarter: 2025Q2

REPORT INFORMATION
  Report Type: Spontaneous
  Country: TW (occurrence: TW)
  Receive Date: 20250420
  Receipt Date: 20250420
  Transmission Date: 20250716
  Serious: Yes (Other)
  Sender: JOHNSON AND JOHNSON
  Company Number: TW-MTPC-MTPC2025-0006984

PATIENT
  Age: 6 Year
  Sex: Female

DRUGS (1)
  1. REMICADE [Suspect]
     Active Substance: INFLIXIMAB
     Indication: Crohn^s disease
     Dosage: 100 MILLIGRAM, Q4WEEKS
     Route: 041
     Dates: start: 20231004, end: 20250410

REACTIONS (3)
  - Anaphylactic reaction [Unknown]
  - Antibody test positive [Unknown]
  - Drug level decreased [Unknown]

NARRATIVE: CASE EVENT DATE: 20240314
